FAERS Safety Report 5831477-2 (Version None)
Quarter: 2008Q3

REPORT INFORMATION
  Report Type: 
  Country: None (occurrence: None)
  Receive Date: 20080801
  Receipt Date: 20080722
  Transmission Date: 20090109
  Serious: Yes (Other)
  Sender: FDA-Public Use
  Company Number: ES-PFIZER INC-2008060969

PATIENT
  Age: 74 Year
  Sex: Female

DRUGS (8)
  1. LYRICA [Suspect]
     Indication: PARAESTHESIA
     Route: 048
     Dates: start: 20080317, end: 20080324
  2. ACOVIL [Concomitant]
  3. ASPIRIN [Concomitant]
  4. CARDYL [Concomitant]
  5. EZETROL [Concomitant]
  6. LANTUS [Concomitant]
  7. PLAVIX [Concomitant]
  8. SUTRIL [Concomitant]

REACTIONS (2)
  - BLOOD PRESSURE INCREASED [None]
  - GENERALISED OEDEMA [None]
